FAERS Safety Report 4742974-5 (Version None)
Quarter: 2005Q3

REPORT INFORMATION
  Report Type: 
  Country: None (occurrence: None)
  Receive Date: 20050810
  Receipt Date: 20050810
  Transmission Date: 20060218
  Serious: Yes (Other)
  Sender: FDA-Public Use
  Company Number: None

PATIENT
  Age: 19 Year
  Sex: Male

DRUGS (2)
  1. CORICIDIN [Suspect]
     Dosage: 16 TABS ORAL
     Dates: start: 20040101, end: 20040101
  2. ALCOHOL [Concomitant]

REACTIONS (4)
  - ABNORMAL BEHAVIOUR [None]
  - ALCOHOLISM [None]
  - INTENTIONAL MISUSE [None]
  - OVERDOSE [None]
